FAERS Safety Report 18897895 (Version 1)
Quarter: 2021Q1

REPORT INFORMATION
  Report Type: Spontaneous
  Country: US (occurrence: US)
  Receive Date: 20210212
  Receipt Date: 20210212
  Transmission Date: 20210420
  Serious: Yes (Disabling)
  Sender: FDA-Public Use
  Company Number: None

PATIENT
  Age: 18 Year
  Sex: Male
  Weight: 72 kg

DRUGS (6)
  1. KLONOPIN [Suspect]
     Active Substance: CLONAZEPAM
  2. ASHWAGANDA [Concomitant]
     Active Substance: HERBALS
  3. CYMBALTA [Suspect]
     Active Substance: DULOXETINE HYDROCHLORIDE
  4. ESCITALOPRAM [Suspect]
     Active Substance: ESCITALOPRAM OXALATE
     Indication: PANIC ATTACK
     Dosage: ?          QUANTITY:24 TABLET(S);?
     Route: 048
     Dates: start: 20181220, end: 20210212
  5. LEXAPRO [Concomitant]
     Active Substance: ESCITALOPRAM OXALATE
  6. ESCITALOPRAM [Suspect]
     Active Substance: ESCITALOPRAM OXALATE
     Indication: ANXIETY
     Dosage: ?          QUANTITY:24 TABLET(S);?
     Route: 048
     Dates: start: 20181220, end: 20210212

REACTIONS (7)
  - Libido disorder [None]
  - Abdominal discomfort [None]
  - Sensory disturbance [None]
  - Dyspnoea [None]
  - Weight decreased [None]
  - Erectile dysfunction [None]
  - Discomfort [None]

NARRATIVE: CASE EVENT DATE: 20181220
